FAERS Safety Report 7337759-X (Version None)
Quarter: 2011Q1

REPORT INFORMATION
  Report Type: 
  Country: None (occurrence: None)
  Receive Date: 20110308
  Receipt Date: 20110209
  Transmission Date: 20110831
  Serious: No
  Sender: FDA-Public Use
  Company Number: US-B.I. PHARMACEUTICALS,INC./RIDGEFIELD-2011-BP-05119BP

PATIENT
  Age: 85 Year
  Sex: Male

DRUGS (4)
  1. FINASTERIDE [Concomitant]
     Indication: PROSTATIC DISORDER
     Dosage: 5 MG
     Route: 048
  2. PRADAXA [Suspect]
     Indication: ATRIAL FIBRILLATION
     Dosage: 150 MG
     Route: 048
     Dates: start: 20110131, end: 20110205
  3. OMEPRAZOLE [Concomitant]
     Indication: GASTROOESOPHAGEAL REFLUX DISEASE
     Dosage: 20 MG
     Route: 048
  4. MICARDIS [Concomitant]
     Indication: HYPERTENSION
     Dosage: 80 MG
     Route: 048

REACTIONS (3)
  - NAUSEA [None]
  - PAIN [None]
  - ABDOMINAL PAIN UPPER [None]
